FAERS Safety Report 15890885 (Version 1)
Quarter: 2019Q1

REPORT INFORMATION
  Report Type: Report from Study
  Country: PL (occurrence: PL)
  Receive Date: 20190130
  Receipt Date: 20190130
  Transmission Date: 20190417
  Serious: Yes (Other)
  Sender: FDA-Public Use
  Company Number: PL-CHIESI USA, INC.-PL-2019CHI000026

PATIENT

DRUGS (4)
  1. CUROSURF [Suspect]
     Active Substance: PORACTANT ALFA
     Indication: NEONATAL RESPIRATORY DISTRESS SYNDROME
     Dosage: 100 MG, UNK
     Route: 039
     Dates: start: 20181126, end: 20181126
  2. CUROSURF [Suspect]
     Active Substance: PORACTANT ALFA
     Dosage: 100 MG, UNK
     Route: 039
     Dates: start: 20181126, end: 20181126
  3. CAFFEINE CITRATE. [Concomitant]
     Active Substance: CAFFEINE CITRATE
     Indication: INFANTILE APNOEA
     Dosage: 25 MG (INITIAL DOSE) AND NEXT DAYS AT A DOSE OF 7 MG
     Dates: start: 20181125, end: 201811
  4. CUROSURF [Suspect]
     Active Substance: PORACTANT ALFA
     Dosage: 100 MG, UNK
     Route: 039
     Dates: start: 20181126, end: 20181126

REACTIONS (3)
  - Bradycardia neonatal [Recovered/Resolved]
  - Inappropriate schedule of product administration [Recovered/Resolved]
  - Infantile apnoea [Recovered/Resolved]

NARRATIVE: CASE EVENT DATE: 20181126
